FAERS Safety Report 11224923 (Version 1)
Quarter: 2015Q2

REPORT INFORMATION
  Report Type: Spontaneous
  Country: US (occurrence: None)
  Receive Date: 20150625
  Receipt Date: 20150625
  Transmission Date: 20150821
  Serious: Yes (Hospitalization)
  Sender: FDA-Public Use
  Company Number: 2015ST00015

PATIENT
  Age: 50 Year
  Sex: Female

DRUGS (1)
  1. RUCONEST [Suspect]
     Active Substance: HUMAN C1-ESTERASE INHIBITOR
     Indication: HEREDITARY ANGIOEDEMA
     Dates: start: 20150608, end: 20150608

REACTIONS (2)
  - Infusion related reaction [None]
  - Swollen tongue [None]

NARRATIVE: CASE EVENT DATE: 20150608
